FAERS Safety Report 18361499 (Version 5)
Quarter: 2021Q1

REPORT INFORMATION
  Report Type: Report from Study
  Country: US (occurrence: US)
  Receive Date: 20201008
  Receipt Date: 20210116
  Transmission Date: 20210419
  Serious: No
  Sender: FDA-Public Use
  Company Number: NVSC2020US269985

PATIENT
  Age: 51 Year
  Sex: Male

DRUGS (1)
  1. COSENTYX [Suspect]
     Active Substance: SECUKINUMAB
     Indication: PSORIATIC ARTHROPATHY
     Dosage: 300 MG (ONCE WEEKLY FOR 5 WEEKS (LOADING) THEN ONCE EVERY 4 WEEKS (MAINTENANCE))
     Route: 058
     Dates: start: 20201001

REACTIONS (12)
  - Impaired healing [Unknown]
  - Pruritus [Unknown]
  - Drug ineffective [Unknown]
  - Arthralgia [Not Recovered/Not Resolved]
  - Injection site extravasation [Unknown]
  - Scratch [Unknown]
  - Fatigue [Unknown]
  - Incorrect dose administered [Unknown]
  - Headache [Unknown]
  - Illness [Unknown]
  - Abdominal discomfort [Unknown]
  - Nausea [Unknown]

NARRATIVE: CASE EVENT DATE: 20201001
